FAERS Safety Report 7828972-3 (Version None)
Quarter: 2011Q4

REPORT INFORMATION
  Report Type: 
  Country: None (occurrence: None)
  Receive Date: 20111020
  Receipt Date: 20111014
  Transmission Date: 20120403
  Serious: Yes (Other)
  Sender: FDA-Public Use
  Company Number: US-CEPHALON-2011004743

PATIENT
  Sex: Female

DRUGS (2)
  1. NUVIGIL [Suspect]
     Route: 048
     Dates: start: 20110101, end: 20110907
  2. NUVIGIL [Suspect]
     Route: 048
     Dates: start: 20110101, end: 20110101

REACTIONS (3)
  - DRUG HYPERSENSITIVITY [None]
  - CONVULSION [None]
  - DRUG INEFFECTIVE [None]
